FAERS Safety Report 12077894 (Version 1)
Quarter: 2016Q1

REPORT INFORMATION
  Report Type: Spontaneous
  Country: PT (occurrence: PT)
  Receive Date: 20160215
  Receipt Date: 20160215
  Transmission Date: 20160526
  Serious: Yes (Other)
  Sender: FDA-Public Use
  Company Number: PT-OTSUKA-2016_003750

PATIENT
  Age: 87 Year
  Sex: Female

DRUGS (6)
  1. DACOGEN [Suspect]
     Active Substance: DECITABINE
     Dosage: UNK
     Route: 065
     Dates: start: 20160201
  2. DACOGEN [Suspect]
     Active Substance: DECITABINE
     Indication: ACUTE MYELOID LEUKAEMIA
     Dosage: UNK
     Route: 065
     Dates: start: 20150928
  3. CRESTOR [Concomitant]
     Active Substance: ROSUVASTATIN CALCIUM
     Indication: HYPERTENSION
     Route: 065
  4. DACOGEN [Suspect]
     Active Substance: DECITABINE
     Dosage: UNK
     Route: 065
     Dates: start: 20151026
  5. DACOGEN [Suspect]
     Active Substance: DECITABINE
     Dosage: UNK
     Route: 065
     Dates: start: 20151123
  6. DACOGEN [Suspect]
     Active Substance: DECITABINE
     Dosage: UNK
     Route: 065
     Dates: start: 20160104

REACTIONS (2)
  - Transient ischaemic attack [Unknown]
  - Arthralgia [Unknown]

NARRATIVE: CASE EVENT DATE: 20151107
